FAERS Safety Report 5441859-9 (Version None)
Quarter: 2007Q3

REPORT INFORMATION
  Report Type: 
  Country: None (occurrence: None)
  Receive Date: 20070829
  Receipt Date: 20070824
  Transmission Date: 20080115
  Serious: Yes (Other)
  Sender: FDA-Public Use
  Company Number: 2005002416

PATIENT
  Age: 70 Year
  Sex: Female

DRUGS (15)
  1. MACUGEN [Suspect]
     Indication: MACULAR DEGENERATION
     Dosage: 0.3 MG (Q6W) INTRA-VITREAL
     Dates: start: 20051012
  2. HYDROCHLOROTHIAZIDE [Concomitant]
  3. VIGAMOX OPN [Concomitant]
  4. MYDRIACYL [Concomitant]
  5. NEO-SYNEPHRINE (PHENYLEPHRINE HYDROCHLORIDE) [Concomitant]
  6. PROPARACAINE (PROXYMETACAINE) [Concomitant]
  7. POVIDONE IODINE [Concomitant]
  8. ASPIRIN [Concomitant]
  9. PLAVIX [Concomitant]
  10. OCUVITE (OCUVITE) [Concomitant]
  11. PLETAL [Concomitant]
  12. PRAVACOL (PRAVASTAIN SODIUM) [Concomitant]
  13. NORVASC [Concomitant]
  14. ACETAMINOPHEN [Concomitant]
  15. RANITIDINE [Concomitant]

REACTIONS (4)
  - HYPERSENSITIVITY [None]
  - OBSTRUCTIVE AIRWAYS DISORDER [None]
  - THROAT TIGHTNESS [None]
  - URTICARIA [None]
